FAERS Safety Report 5487716-3 (Version None)
Quarter: 2007Q4

REPORT INFORMATION
  Report Type: 
  Country: None (occurrence: None)
  Receive Date: 20071015
  Receipt Date: 20071015
  Transmission Date: 20080405
  Serious: Yes (Death)
  Sender: FDA-Public Use
  Company Number: None

PATIENT
  Age: 20 Year
  Sex: Male

DRUGS (1)
  1. ALBUTEROL [Suspect]
     Route: 048
     Dates: start: 20070917, end: 20070924

REACTIONS (7)
  - BRAIN DEATH [None]
  - CARDIAC ARREST [None]
  - DRUG INEFFECTIVE [None]
  - PHARMACEUTICAL PRODUCT COMPLAINT [None]
  - PULSE ABSENT [None]
  - RESPIRATORY ARREST [None]
  - WHEEZING [None]
